FAERS Safety Report 8806627 (Version 1)
Quarter: 2012Q4

REPORT INFORMATION
  Report Type: Report from Study
  Country: US (occurrence: US)
  Receive Date: 20120925
  Receipt Date: 20120925
  Transmission Date: 20130627
  Serious: Yes (Death)
  Sender: FDA-Public Use
  Company Number: US-SANOFI-AVENTIS-2012SA069814

PATIENT
  Age: 60 Year
  Sex: Female
  Weight: 80.3 kg

DRUGS (10)
  1. DOCETAXEL [Suspect]
     Indication: HER-2 POSITIVE BREAST CANCER
     Dosage: form :vial
     Route: 042
     Dates: start: 20090811, end: 20090819
  2. CARBOPLATIN [Suspect]
     Indication: HER-2 POSITIVE BREAST CANCER
     Dosage: form :amule
     Route: 042
     Dates: start: 20090811, end: 20090819
  3. TRASTUZUMAB [Suspect]
     Indication: HER-2 POSITIVE BREAST CANCER
     Dosage: form :vial
     Route: 042
     Dates: start: 20090811, end: 20090819
  4. ATENOLOL [Concomitant]
     Dates: end: 20090819
  5. LEVOTHYROXINE [Concomitant]
     Route: 065
     Dates: end: 20090819
  6. PRAVASTATIN [Concomitant]
     Route: 065
     Dates: end: 20090819
  7. ALPRAZOLAM [Concomitant]
     Route: 065
     Dates: end: 20090819
  8. ZANTAC [Concomitant]
     Dosage: Dose: 50 (unit not reported)
     Route: 042
  9. DIPHENHYDRAMINE HYDROCHLORIDE [Concomitant]
     Dosage: dose: 25 (unit not reported)
     Route: 042
  10. DEXAMETHASONE [Concomitant]
     Dosage: Dose: 10 (unit not reported)
     Route: 042

REACTIONS (1)
  - Death [Fatal]
